FAERS Safety Report 15750308 (Version 1)
Quarter: 2018Q4

REPORT INFORMATION
  Report Type: Spontaneous
  Country: SI (occurrence: SI)
  Receive Date: 20181221
  Receipt Date: 20181221
  Transmission Date: 20190205
  Serious: Yes (Other)
  Sender: FDA-Public Use
  Company Number: SI-JNJFOC-20181223038

PATIENT
  Age: 42 Year
  Sex: Female

DRUGS (1)
  1. XARELTO [Suspect]
     Active Substance: RIVAROXABAN
     Indication: PRODUCT USED FOR UNKNOWN INDICATION
     Route: 048
     Dates: start: 201306

REACTIONS (12)
  - Autoimmune thyroid disorder [Unknown]
  - Inflammatory bowel disease [Unknown]
  - Spinal pain [Unknown]
  - Rash pruritic [Unknown]
  - Skin exfoliation [Unknown]
  - Blood thyroid stimulating hormone decreased [Unknown]
  - Hypothyroidism [Unknown]
  - Polyarthritis [Unknown]
  - Erythema [Unknown]
  - Thyroid operation [Unknown]
  - Antiphospholipid syndrome [Unknown]
  - Headache [Unknown]

NARRATIVE: CASE EVENT DATE: 201310
